FAERS Safety Report 24467997 (Version 3)
Quarter: 2025Q4

REPORT INFORMATION
  Report Type: Spontaneous
  Country: US (occurrence: None)
  Receive Date: 20241018
  Receipt Date: 20251030
  Transmission Date: 20260117
  Serious: No
  Sender: UCB
  Company Number: US-UCBSA-2024030023

PATIENT

DRUGS (2)
  1. BIMZELX [Suspect]
     Active Substance: BIMEKIZUMAB-BKZX
     Indication: Psoriasis
     Dosage: 320 MILLIGRAM, AT WEEK 8,12, AND 16
  2. BIMZELX [Suspect]
     Active Substance: BIMEKIZUMAB-BKZX
     Dosage: 320 MILLIGRAM, EV 8 WEEKS

REACTIONS (5)
  - Oral pain [Recovered/Resolved]
  - Dry mouth [Recovered/Resolved]
  - Oral candidiasis [Recovered/Resolved]
  - Stomatitis [Recovered/Resolved]
  - Adverse event [Unknown]
